FAERS Safety Report 5491199-7 (Version None)
Quarter: 2007Q4

REPORT INFORMATION
  Report Type: 
  Country: None (occurrence: None)
  Receive Date: 20071019
  Receipt Date: 20071009
  Transmission Date: 20080405
  Serious: Yes (Other)
  Sender: FDA-Public Use
  Company Number: US-PFIZER INC-2007085770

PATIENT
  Sex: Male
  Weight: 149.7 kg

DRUGS (7)
  1. CHANTIX [Suspect]
     Indication: SMOKING CESSATION THERAPY
     Route: 048
     Dates: start: 20070901, end: 20071009
  2. SIMVASTATIN [Concomitant]
  3. ACETYLSALICYLIC ACID [Concomitant]
  4. METFORMIN HCL [Concomitant]
  5. SERTRALINE [Concomitant]
  6. LISINOPRIL [Concomitant]
  7. LUMIGAN [Concomitant]
     Route: 047

REACTIONS (3)
  - BACK PAIN [None]
  - BEDRIDDEN [None]
  - KIDNEY INFECTION [None]
